FAERS Safety Report 7065110-1 (Version None)
Quarter: 2010Q4

REPORT INFORMATION
  Report Type: 
  Country: None (occurrence: None)
  Receive Date: 20101027
  Receipt Date: 19931013
  Transmission Date: 20110411
  Serious: Yes (Congenital Anomaly, Other)
  Sender: FDA-Public Use
  Company Number: ES-ROCHE-930100786001

PATIENT

DRUGS (4)
  1. DIAZEPAM [Suspect]
     Indication: PRODUCT USED FOR UNKNOWN INDICATION
  2. TIGASON [Suspect]
     Indication: PSORIASIS
  3. UNSPECIFIED MEDICATIONS [Concomitant]
  4. ALCOHOL [Concomitant]

REACTIONS (13)
  - ANAL ATRESIA [None]
  - CONGENITAL GENITOURINARY ABNORMALITY [None]
  - CONGENITAL NAIL DISORDER [None]
  - CYANOSIS NEONATAL [None]
  - DEATH NEONATAL [None]
  - DEFORMITY THORAX [None]
  - DYSMORPHISM [None]
  - FINGER HYPOPLASIA [None]
  - HIP DYSPLASIA [None]
  - JOINT SWELLING [None]
  - LIMB REDUCTION DEFECT [None]
  - NEONATAL RESPIRATORY DEPRESSION [None]
  - RENAL APLASIA [None]
